FAERS Safety Report 4340160-4 (Version None)
Quarter: 2004Q2

REPORT INFORMATION
  Report Type: 
  Country: None (occurrence: None)
  Receive Date: 20040416
  Receipt Date: 20040416
  Transmission Date: 20050107
  Serious: Yes (Hospitalization)
  Sender: FDA-Public Use
  Company Number: None

PATIENT
  Age: 63 Year
  Sex: Female
  Weight: 71.8 kg

DRUGS (7)
  1. CISPLATIN [Suspect]
     Indication: CERVIX CARCINOMA
     Dosage: 20 MG/M2 ONCE WEEKLY INTRAVENOUS
     Route: 042
     Dates: start: 20040412, end: 20040412
  2. TOPOTECAN [Suspect]
     Indication: CERVIX CARCINOMA
     Dosage: 0.15 MG/M2 DAY X 5 DA INTRAVENOUS
     Route: 042
     Dates: start: 20040412, end: 20040412
  3. COUMEDIN [Concomitant]
  4. GLUCOPHAGE [Concomitant]
  5. ALTENOLOL [Concomitant]
  6. AMARYL [Concomitant]
  7. MEGACE [Concomitant]

REACTIONS (11)
  - BACTERIAL INFECTION [None]
  - BLOOD CREATINE INCREASED [None]
  - CULTURE URINE POSITIVE [None]
  - DEPRESSED LEVEL OF CONSCIOUSNESS [None]
  - DIABETIC KETOACIDOSIS [None]
  - HYPEROSMOLAR STATE [None]
  - HYPOMAGNESAEMIA [None]
  - HYPONATRAEMIA [None]
  - SEPSIS [None]
  - SOMNOLENCE [None]
  - STAPHYLOCOCCAL INFECTION [None]
